FAERS Safety Report 17772903 (Version 20)
Quarter: 2024Q3

REPORT INFORMATION
  Report Type: Report from Study
  Country: CA (occurrence: CA)
  Receive Date: 20200512
  Receipt Date: 20240912
  Transmission Date: 20241017
  Serious: Yes (Hospitalization, Other)
  Sender: NOVARTIS
  Company Number: PHHY2019CA060714

PATIENT
  Age: 72 Year
  Sex: Female

DRUGS (20)
  1. COSENTYX [Suspect]
     Active Substance: SECUKINUMAB
     Indication: Psoriasis
     Dosage: 300 MG, QW
     Route: 058
     Dates: start: 20190313
  2. COSENTYX [Suspect]
     Active Substance: SECUKINUMAB
     Dosage: 300 MG, QMO
     Route: 058
  3. COSENTYX [Suspect]
     Active Substance: SECUKINUMAB
     Dosage: 300 MG, QMO
     Route: 058
     Dates: start: 20190510
  4. COSENTYX [Suspect]
     Active Substance: SECUKINUMAB
     Dosage: 300 MG, QMO
     Route: 058
     Dates: start: 20190704
  5. COSENTYX [Suspect]
     Active Substance: SECUKINUMAB
     Dosage: 300 MG, QMO
     Route: 058
     Dates: start: 20190731
  6. COSENTYX [Suspect]
     Active Substance: SECUKINUMAB
     Dosage: 300 MG, QMO
     Route: 058
     Dates: start: 20191121
  7. COSENTYX [Suspect]
     Active Substance: SECUKINUMAB
     Dosage: 300 MG, QMO
     Route: 058
     Dates: start: 20191219
  8. COSENTYX [Suspect]
     Active Substance: SECUKINUMAB
     Dosage: 300 MG, QMO
     Route: 058
     Dates: start: 20200312
  9. COSENTYX [Suspect]
     Active Substance: SECUKINUMAB
     Dosage: 300 MG, QMO
     Route: 058
     Dates: start: 20200409
  10. COSENTYX [Suspect]
     Active Substance: SECUKINUMAB
     Dosage: 300 MG, QMO
     Route: 058
     Dates: start: 20200604
  11. COSENTYX [Suspect]
     Active Substance: SECUKINUMAB
     Dosage: 300 MG, QMO
     Route: 058
  12. COSENTYX [Suspect]
     Active Substance: SECUKINUMAB
     Dosage: UNK
     Route: 065
     Dates: start: 20240905
  13. COSENTYX [Suspect]
     Active Substance: SECUKINUMAB
     Dosage: UNK
     Route: 065
  14. LOSARTAN POTASSIUM [Concomitant]
     Active Substance: LOSARTAN POTASSIUM
     Indication: Product used for unknown indication
     Dosage: UNK
     Route: 065
  15. XALATAN [Concomitant]
     Active Substance: LATANOPROST
     Indication: Product used for unknown indication
     Dosage: UNK
     Route: 065
  16. METFORMIN [Concomitant]
     Active Substance: METFORMIN HYDROCHLORIDE
     Indication: Product used for unknown indication
     Dosage: UNK
     Route: 065
     Dates: start: 201808
  17. DESONIDE [Concomitant]
     Active Substance: DESONIDE
     Indication: Product used for unknown indication
     Dosage: UNK
     Route: 065
  18. EURO-ASA [Concomitant]
     Indication: Product used for unknown indication
     Dosage: UNK
     Route: 065
  19. CRESTOR [Concomitant]
     Active Substance: ROSUVASTATIN CALCIUM
     Indication: Blood cholesterol
     Dosage: 1 DOSAGE FORM, QD (AT BED TIME)
     Route: 065
     Dates: start: 20200604
  20. JARDIANCE [Concomitant]
     Active Substance: EMPAGLIFLOZIN
     Indication: Diabetes mellitus
     Dosage: 10 MG, QD
     Route: 065

REACTIONS (44)
  - Intracranial mass [Unknown]
  - Visual impairment [Unknown]
  - Migraine [Unknown]
  - Ovarian cyst [Unknown]
  - Peripheral swelling [Not Recovered/Not Resolved]
  - Pain in extremity [Not Recovered/Not Resolved]
  - Polyarthritis [Unknown]
  - Pneumonia [Unknown]
  - Bacteraemia [Unknown]
  - Pyrexia [Unknown]
  - Varices oesophageal [Unknown]
  - Blood pressure increased [Not Recovered/Not Resolved]
  - Vitreous detachment [Unknown]
  - Hepatic cirrhosis [Unknown]
  - Macular hole [Not Recovered/Not Resolved]
  - Ocular discomfort [Unknown]
  - Retinal detachment [Unknown]
  - Body temperature decreased [Unknown]
  - Pruritus [Recovered/Resolved]
  - Pruritus [Unknown]
  - Abscess oral [Recovered/Resolved]
  - Bronchitis [Unknown]
  - Erythema [Unknown]
  - Fluid retention [Unknown]
  - Cyst [Unknown]
  - Dyspnoea exertional [Unknown]
  - Oedema peripheral [Unknown]
  - Dyspnoea [Unknown]
  - Ear pain [Recovering/Resolving]
  - Neuralgia [Recovering/Resolving]
  - Fungal infection [Recovering/Resolving]
  - Vitreous floaters [Unknown]
  - Procedural pain [Unknown]
  - Stasis dermatitis [Unknown]
  - Eye contusion [Unknown]
  - Vision blurred [Unknown]
  - Oral herpes [Recovered/Resolved]
  - Oral herpes [Recovering/Resolving]
  - Nasopharyngitis [Recovered/Resolved]
  - Nasal congestion [Unknown]
  - Sneezing [Unknown]
  - Cough [Unknown]
  - Syringe issue [Unknown]
  - Product contamination [Unknown]

NARRATIVE: CASE EVENT DATE: 20190301
